APPROVED DRUG PRODUCT: SYMTUZA
Active Ingredient: COBICISTAT; DARUNAVIR; EMTRICITABINE; TENOFOVIR ALAFENAMIDE FUMARATE
Strength: 150MG;800MG;200MG;EQ 10MG BASE
Dosage Form/Route: TABLET;ORAL
Application: N210455 | Product #001
Applicant: JANSSEN PRODUCTS LP
Approved: Jul 17, 2018 | RLD: Yes | RS: Yes | Type: RX

PATENTS:
Patent 8754065 | Expires: Aug 15, 2032
Patent 9296769 | Expires: Aug 15, 2032
Patent 8148374 | Expires: Sep 3, 2029
Patent 8148374 | Expires: Sep 3, 2029
Patent 8148374 | Expires: Sep 3, 2029
Patent 8148374 | Expires: Sep 3, 2029
Patent 10786518 | Expires: Jul 19, 2038
Patent 8754065 | Expires: Aug 15, 2032
Patent 9296769 | Expires: Aug 15, 2032
Patent 8148374 | Expires: Sep 3, 2029
Patent 8148374 | Expires: Sep 3, 2029
Patent 10039718 | Expires: Oct 6, 2032
Patent 7700645 | Expires: Dec 26, 2026